FAERS Safety Report 14410010 (Version 1)
Quarter: 2018Q1

REPORT INFORMATION
  Report Type: Spontaneous
  Country: US (occurrence: US)
  Receive Date: 20180119
  Receipt Date: 20180119
  Transmission Date: 20180509
  Serious: No
  Sender: FDA-Public Use
  Company Number: US-PFIZER INC-2016302262

PATIENT
  Age: 55 Year
  Sex: Male
  Weight: 70.31 kg

DRUGS (5)
  1. TYLENOL [Concomitant]
     Active Substance: ACETAMINOPHEN
     Indication: HEADACHE
     Dosage: 200 MG, AS NEEDED (MAYBE ONCE A WEEK)
  2. PREDNISONE. [Concomitant]
     Active Substance: PREDNISONE
     Indication: SARCOIDOSIS
     Dosage: UNK UNK, DAILY (10-15MG)(WEANED PER DOCTOR INSTRUCTIONS/ TOOK IT FOR 2-3 WEEKS)
     Dates: start: 201709
  3. ALEVE [Concomitant]
     Active Substance: NAPROXEN SODIUM
     Indication: HEADACHE
     Dosage: 200 MG, AS NEEDED (MAYBE ONCE A WEEK)
  4. LYRICA [Suspect]
     Active Substance: PREGABALIN
     Indication: NEUROPATHY PERIPHERAL
     Dosage: 150MG CAPSULE, 2 CAPSULES DAILY
     Dates: start: 2009
  5. XANAX [Concomitant]
     Active Substance: ALPRAZOLAM
     Indication: STRESS AT WORK
     Dosage: 0.25 MG, AS NEEDED (TAKES A HALF A TABLET ONCE A DAY AS NEEDED. HE CAN TAKE 1-2 PILLS A DAY)

REACTIONS (8)
  - Somnolence [Recovering/Resolving]
  - Intentional product use issue [Unknown]
  - Urticaria [Not Recovered/Not Resolved]
  - Chills [Not Recovered/Not Resolved]
  - Feeling hot [Not Recovered/Not Resolved]
  - Drug effect increased [Recovering/Resolving]
  - Gastrointestinal sounds abnormal [Not Recovered/Not Resolved]
  - Erythema [Not Recovered/Not Resolved]

NARRATIVE: CASE EVENT DATE: 2017
